FAERS Safety Report 6588150-5 (Version None)
Quarter: 2010Q1

REPORT INFORMATION
  Report Type: 
  Country: None (occurrence: None)
  Receive Date: 20100212
  Receipt Date: 20100205
  Transmission Date: 20100710
  Serious: Yes (Other)
  Sender: FDA-Public Use
  Company Number: SP02709

PATIENT
  Age: 62 Year
  Sex: Female

DRUGS (8)
  1. VISICOL [Suspect]
     Indication: BOWEL PREPARATION
     Dosage: ORAL
     Route: 048
     Dates: start: 20091202, end: 20091202
  2. DIAZEPAM [Concomitant]
  3. OLMESARTAN MEDOXOMIL [Concomitant]
  4. AMLODIPINE [Concomitant]
  5. FAMOTIDINE [Concomitant]
  6. MOSAPRIDE CITRATE [Concomitant]
  7. TRIMEBUTINE [Concomitant]
  8. EPERISONE [Concomitant]

REACTIONS (5)
  - ACUTE PRERENAL FAILURE [None]
  - DIARRHOEA [None]
  - HEADACHE [None]
  - NAUSEA [None]
  - PELVIC FLUID COLLECTION [None]
